FAERS Safety Report 9541297 (Version 1)
Quarter: 2013Q3

REPORT INFORMATION
  Report Type: Spontaneous
  Country: US (occurrence: US)
  Receive Date: 20130923
  Receipt Date: 20130923
  Transmission Date: 20140515
  Serious: No
  Sender: FDA-Public Use
  Company Number: US-009507513-1309USA007050

PATIENT
  Age: 56 Year
  Sex: Male

DRUGS (2)
  1. NASONEX [Suspect]
     Indication: SINUSITIS
     Dosage: 2 SPRAYS IN EACH NOSTRIL ONCE DAILY
     Route: 045
     Dates: start: 2007
  2. PORCINE PANCREAS [Concomitant]

REACTIONS (2)
  - Bacterial infection [Recovered/Resolved]
  - Viral infection [Unknown]
